FAERS Safety Report 25540616 (Version 1)
Quarter: 2025Q3

REPORT INFORMATION
  Report Type: Spontaneous
  Country: US (occurrence: US)
  Receive Date: 20250710
  Receipt Date: 20250710
  Transmission Date: 20251021
  Serious: Yes (Death, Hospitalization)
  Sender: AMGEN
  Company Number: US-AMGEN-USASP2025130379

PATIENT
  Age: 0 Year
  Weight: 7.5 kg

DRUGS (2)
  1. RITUXIMAB [Suspect]
     Active Substance: RITUXIMAB
     Indication: Transplant rejection
     Route: 065
  2. Immunoglobulin [Concomitant]
     Route: 040

REACTIONS (6)
  - Multiple organ dysfunction syndrome [Fatal]
  - Sepsis [Unknown]
  - Rhinovirus infection [Unknown]
  - Tachycardia [Unknown]
  - Off label use [Unknown]
  - Tachypnoea [Unknown]
